FAERS Safety Report 8315498-6 (Version None)
Quarter: 2012Q2

REPORT INFORMATION
  Report Type: 
  Country: None (occurrence: None)
  Receive Date: 20120426
  Receipt Date: 20120321
  Transmission Date: 20120825
  Serious: Yes (Other)
  Sender: FDA-Public Use
  Company Number: CHPA2012US009271

PATIENT
  Age: 23 Year
  Sex: Female

DRUGS (1)
  1. EXCEDRIN (MIGRAINE) [Suspect]
     Indication: MIGRAINE
     Dosage: 2 DF, 1-2 TIMES A DAY PRN
     Route: 048
     Dates: start: 20120101, end: 20120201

REACTIONS (3)
  - HALLUCINATION, AUDITORY [None]
  - OVERDOSE [None]
  - EUPHORIC MOOD [None]
